FAERS Safety Report 17798502 (Version 2)
Quarter: 2020Q2

REPORT INFORMATION
  Report Type: Report from Study
  Country: US (occurrence: US)
  Receive Date: 20200518
  Receipt Date: 20200525
  Transmission Date: 20200714
  Serious: Yes (Hospitalization, Other)
  Sender: FDA-Public Use
  Company Number: US-SA-2020SA104822

PATIENT
  Age: 33 Year
  Sex: Female

DRUGS (9)
  1. SARILUMAB [Suspect]
     Active Substance: SARILUMAB
     Indication: CORONAVIRUS INFECTION
     Dosage: REGN MAB1 200 MG, SINGLE
     Route: 042
     Dates: start: 20200410, end: 20200410
  2. PREDNISONE. [Concomitant]
     Active Substance: PREDNISONE
     Indication: ACUTE RESPIRATORY FAILURE
     Dosage: 60 MG, QD
     Route: 048
     Dates: start: 20200409, end: 20200413
  3. AZITHROMYCIN ANHYDROUS. [Concomitant]
     Active Substance: AZITHROMYCIN ANHYDROUS
     Dosage: 500 MG, QD
     Route: 048
     Dates: start: 20200412, end: 20200413
  4. ALBUTEROL [SALBUTAMOL] [Concomitant]
     Active Substance: ALBUTEROL
     Indication: ACUTE RESPIRATORY FAILURE
     Dosage: 180 UG, Q4HOURS PRN
     Route: 055
     Dates: start: 20200409, end: 20200414
  5. ENOXAPARIN [Concomitant]
     Active Substance: ENOXAPARIN
     Indication: ACUTE RESPIRATORY FAILURE
     Dosage: 50 MG, QD
     Route: 058
  6. ACETAMINOFEN [Concomitant]
     Active Substance: ACETAMINOPHEN
     Indication: COVID-19
     Dosage: 650 MG, QID PRN
     Route: 048
     Dates: start: 20200409, end: 20200414
  7. AZITHROMYCIN ANHYDROUS. [Concomitant]
     Active Substance: AZITHROMYCIN ANHYDROUS
     Indication: ACUTE RESPIRATORY FAILURE
     Dosage: 500 MG, QD
     Route: 048
     Dates: start: 20200409, end: 20200411
  8. PREDNISONE. [Concomitant]
     Active Substance: PREDNISONE
     Dosage: 30 MG, QD
     Route: 048
  9. CEFTRIAXONE. [Concomitant]
     Active Substance: CEFTRIAXONE
     Indication: ACUTE RESPIRATORY FAILURE
     Dosage: 1 G, QD
     Route: 042
     Dates: start: 20200409, end: 20200411

REACTIONS (2)
  - Pulmonary embolism [Unknown]
  - Presyncope [Recovered/Resolved]

NARRATIVE: CASE EVENT DATE: 20200411
